FAERS Safety Report 13208063 (Version 2)
Quarter: 2017Q1

REPORT INFORMATION
  Report Type: Spontaneous
  Country: US (occurrence: US)
  Receive Date: 20170209
  Receipt Date: 20170221
  Transmission Date: 20170428
  Serious: Yes (Death, Hospitalization, Other)
  Sender: FDA-Public Use
  Company Number: US-SEBELA IRELAND LIMITED-2017SEB00021

PATIENT
  Age: 30 Year
  Sex: Male
  Weight: 136.5 kg

DRUGS (6)
  1. AZATHIOPRINE. [Suspect]
     Active Substance: AZATHIOPRINE
     Indication: COLITIS ULCERATIVE
     Dosage: 50 MG, 2X/DAY (100 MG DAILY)
     Route: 048
     Dates: start: 2002
  2. MESALAMINE. [Concomitant]
     Active Substance: MESALAMINE
  3. NADOLOL. [Concomitant]
     Active Substance: NADOLOL
  4. AZATHIOPRINE. [Suspect]
     Active Substance: AZATHIOPRINE
     Indication: AUTOIMMUNE HEPATITIS
  5. AZATHIOPRINE. [Suspect]
     Active Substance: AZATHIOPRINE
     Indication: CHOLANGITIS SCLEROSING
  6. LEXAPRO [Concomitant]
     Active Substance: ESCITALOPRAM OXALATE

REACTIONS (21)
  - Hepatosplenic T-cell lymphoma [Fatal]
  - Clostridium difficile colitis [Unknown]
  - Cushingoid [Unknown]
  - Splenomegaly [Recovered/Resolved]
  - Staphylococcal infection [Unknown]
  - Peripheral swelling [Unknown]
  - Pyrexia [Unknown]
  - Cough [Unknown]
  - Dyspnoea [Unknown]
  - Autoimmune hepatitis [Unknown]
  - Acute kidney injury [Not Recovered/Not Resolved]
  - Acute on chronic liver failure [Not Recovered/Not Resolved]
  - Lactic acidosis [Unknown]
  - Pulmonary mass [Not Recovered/Not Resolved]
  - Cellulitis [Unknown]
  - Off label use [Not Recovered/Not Resolved]
  - Autoimmune haemolytic anaemia [Unknown]
  - Staphylococcal bacteraemia [Unknown]
  - Subcutaneous abscess [Unknown]
  - Malaise [Unknown]
  - Pneumonia [Unknown]

NARRATIVE: CASE EVENT DATE: 2016
